FAERS Safety Report 13286085 (Version 1)
Quarter: 2017Q1

REPORT INFORMATION
  Report Type: Spontaneous
  Country: DE (occurrence: DE)
  Receive Date: 20170301
  Receipt Date: 20170301
  Transmission Date: 20170428
  Serious: Yes (Other)
  Sender: FDA-Public Use
  Company Number: DE-BAUSCH-BL-2017-003649

PATIENT
  Sex: Male

DRUGS (10)
  1. FLOXAL [Suspect]
     Active Substance: OFLOXACIN
     Indication: PRODUCT USED FOR UNKNOWN INDICATION
     Route: 065
  2. MONODEX [Suspect]
     Active Substance: DEXAMETHASONE
     Indication: PRODUCT USED FOR UNKNOWN INDICATION
     Dosage: EVERY HOUR, THEN AFTER TWO HOURS, THEN AFTER 3 HOURS, THEN AFTER 4 HOURS
     Route: 065
     Dates: start: 201610
  3. MONODEX [Suspect]
     Active Substance: DEXAMETHASONE
     Route: 065
     Dates: start: 201702
  4. CLONID OPHTAL 1/8% SINE [Suspect]
     Active Substance: CLONIDINE HYDROCHLORIDE
     Indication: INTRAOCULAR PRESSURE INCREASED
     Route: 065
  5. CLONID OPHTAL 1/8% SINE [Suspect]
     Active Substance: CLONIDINE HYDROCHLORIDE
     Dates: end: 201701
  6. RAMIPRIL. [Concomitant]
     Active Substance: RAMIPRIL
     Indication: PRODUCT USED FOR UNKNOWN INDICATION
  7. CORTISONE [Suspect]
     Active Substance: CORTISONE\HYDROCORTISONE
     Indication: PRODUCT USED FOR UNKNOWN INDICATION
     Route: 065
     Dates: start: 201610
  8. FLUOROURACIL. [Suspect]
     Active Substance: FLUOROURACIL
     Indication: PRODUCT USED FOR UNKNOWN INDICATION
     Dosage: 4 (5MG/0.1 ML) INJECTIONS,
     Route: 047
  9. MONOPROST [Suspect]
     Active Substance: LATANOPROST
     Indication: PRODUCT USED FOR UNKNOWN INDICATION
     Route: 065
  10. TRUSOPT [Suspect]
     Active Substance: DORZOLAMIDE HYDROCHLORIDE
     Indication: PRODUCT USED FOR UNKNOWN INDICATION
     Route: 065

REACTIONS (8)
  - Blood pressure increased [Unknown]
  - Intraocular pressure test abnormal [Unknown]
  - Drug effect incomplete [Unknown]
  - Drug hypersensitivity [Unknown]
  - General physical health deterioration [Unknown]
  - Eye operation [Unknown]
  - Drug intolerance [Unknown]
  - Heart rate increased [Unknown]

NARRATIVE: CASE EVENT DATE: 201609
